FAERS Safety Report 8501754 (Version 3)
Quarter: 2012Q4

REPORT INFORMATION
  Report Type: 
  Country: US (occurrence: US)
  Receive Date: 20120410
  Receipt Date: 20121126
  Transmission Date: 20130627
  Serious: Yes (Hospitalization, Other)
  Sender: FDA-Public Use
  Company Number: US-BAYER-2012-032699

PATIENT
  Age: 40 Year
  Sex: Female
  Weight: 83.9 kg

DRUGS (9)
  1. YAZ [Suspect]
  2. YASMIN [Suspect]
     Indication: VAGINAL BLEEDING
     Dosage: UNK
     Dates: start: 20061031, end: 20080704
  3. OCELLA [Suspect]
     Indication: VAGINAL BLEEDING
     Dosage: UNK
     Dates: start: 20080802, end: 20090327
  4. IRON + VITAMIN C [Concomitant]
     Dosage: UNK UNK, TID
     Route: 048
  5. VITAMIN D [Concomitant]
     Dosage: UNK UNK, BID
     Route: 048
  6. IBUPROFEN [Concomitant]
     Dosage: UNK UNK, PRN
     Route: 048
  7. FERRLECIT [Concomitant]
     Dosage: UNK
     Route: 042
     Dates: start: 20090316
  8. IRON [Concomitant]
     Indication: ANEMIA
     Dosage: UNK
  9. ASCORBIC ACID [Concomitant]
     Dosage: UNK
     Dates: start: 2006

REACTIONS (17)
  - Pulmonary embolism [None]
  - Deep vein thrombosis [None]
  - Injury [None]
  - Pain [None]
  - General physical health deterioration [None]
  - Emotional distress [None]
  - Anxiety [None]
  - General physical health deterioration [None]
  - Pulmonary hypertension [None]
  - Dyspnoea [None]
  - Asthenia [None]
  - Pulmonary infarction [None]
  - Pain in extremity [None]
  - Post thrombotic syndrome [None]
  - Cardiovascular disorder [None]
  - Off label use [None]
  - Oedema peripheral [None]
